FAERS Safety Report 5945802-5 (Version None)
Quarter: 2008Q4

REPORT INFORMATION
  Report Type: 
  Country: None (occurrence: None)
  Receive Date: 20081106
  Receipt Date: 20081029
  Transmission Date: 20090506
  Serious: Yes (Other)
  Sender: FDA-Public Use
  Company Number: CHPA2008US18655

PATIENT
  Age: 79 Year
  Sex: Male

DRUGS (2)
  1. MAALOX ANTACID/ANTIGAS MAX LIQ (NCH) (MAGNESIUM HYDROXIDE, ALUMINIUM H [Suspect]
     Indication: INTESTINAL FUNCTIONAL DISORDER
     Dosage: 1-2 TBSP, AT NIGHT, ORAL
     Route: 048
     Dates: start: 19830101
  2. MAALOX ANTACID/ANTIGAS MAX LIQ (NCH) (MAGNESIUM HYDROXIDE, ALUMINIUM H [Suspect]
     Indication: ULCER
     Dosage: 1-2 TBSP, AT NIGHT, ORAL
     Route: 048
     Dates: start: 19830101

REACTIONS (2)
  - ATRIAL FIBRILLATION [None]
  - INTENTIONAL DRUG MISUSE [None]
